FAERS Safety Report 8275781-X (Version None)
Quarter: 2012Q2

REPORT INFORMATION
  Report Type: 
  Country: None (occurrence: None)
  Receive Date: 20120410
  Receipt Date: 20120410
  Transmission Date: 20120825
  Serious: Yes (Hospitalization)
  Sender: FDA-Public Use
  Company Number: None

PATIENT
  Age: 52 Year
  Sex: Male
  Weight: 119.3 kg

DRUGS (1)
  1. HALOPERIDOL [Suspect]
     Indication: AGITATION
     Dates: start: 20111113, end: 20111114

REACTIONS (23)
  - SEPTIC SHOCK [None]
  - ALCOHOL WITHDRAWAL SYNDROME [None]
  - DYSTONIA [None]
  - TACHYCARDIA [None]
  - HYPERTENSION [None]
  - TRANSAMINASES INCREASED [None]
  - RESPIRATORY DISTRESS [None]
  - AGGRESSION [None]
  - HAEMOTHORAX [None]
  - ANXIETY [None]
  - TREMOR [None]
  - CHOLANGITIS [None]
  - LEUKOCYTOSIS [None]
  - HALLUCINATION [None]
  - PHOTOSENSITIVITY REACTION [None]
  - SPEECH DISORDER [None]
  - PNEUMOTHORAX [None]
  - HALLUCINATIONS, MIXED [None]
  - RESTLESSNESS [None]
  - CONFUSIONAL STATE [None]
  - AGITATION [None]
  - DELIRIUM [None]
  - ESCHERICHIA BACTERAEMIA [None]
